FAERS Safety Report 19288084 (Version 1)
Quarter: 2021Q2

REPORT INFORMATION
  Report Type: Spontaneous
  Country: FR (occurrence: FR)
  Receive Date: 20210521
  Receipt Date: 20210521
  Transmission Date: 20210717
  Serious: Yes (Hospitalization)
  Sender: FDA-Public Use
  Company Number: FR-009507513-2105FRA002445

PATIENT
  Age: 89 Year
  Sex: Female
  Weight: 55 kg

DRUGS (1)
  1. INVANZ [Suspect]
     Active Substance: ERTAPENEM SODIUM
     Indication: VASCULAR DEVICE INFECTION
     Dosage: 1G, QD
     Route: 042
     Dates: start: 20210414, end: 20210424

REACTIONS (2)
  - Generalised tonic-clonic seizure [Recovered/Resolved]
  - Hyponatraemia [Recovered/Resolved]

NARRATIVE: CASE EVENT DATE: 20210424
